FAERS Safety Report 6208882-8 (Version None)
Quarter: 2009Q2

REPORT INFORMATION
  Report Type: 
  Country: None (occurrence: None)
  Receive Date: 20090529
  Receipt Date: 20090518
  Transmission Date: 20091009
  Serious: Yes (Other)
  Sender: FDA-Public Use
  Company Number: B0574719A

PATIENT
  Sex: Female

DRUGS (6)
  1. ABACAVIR SULFATE [Suspect]
     Indication: HIV INFECTION
     Route: 065
     Dates: start: 20040601, end: 20060424
  2. LAMIVUDINE [Suspect]
     Indication: HIV INFECTION
     Route: 065
     Dates: start: 20040601, end: 20060424
  3. NEVIRAPINE [Suspect]
     Indication: HIV INFECTION
     Dosage: 130MG TWICE PER DAY
     Route: 065
     Dates: start: 20040601, end: 20060424
  4. DAPSONE [Concomitant]
     Dosage: 50MG PER DAY
  5. SEPTRIN [Concomitant]
     Indication: PROPHYLAXIS
     Route: 065
  6. AZITHROMYCIN [Concomitant]
     Indication: BRONCHIECTASIS
     Route: 065

REACTIONS (6)
  - CD4 LYMPHOCYTES DECREASED [None]
  - CD8 LYMPHOCYTES DECREASED [None]
  - IMMUNE SYSTEM DISORDER [None]
  - LUNG DISORDER [None]
  - LYMPHOPENIA [None]
  - NEUTROPENIA [None]
